FAERS Safety Report 12894633 (Version 1)
Quarter: 2016Q4

REPORT INFORMATION
  Report Type: Spontaneous
  Country: US (occurrence: US)
  Receive Date: 20161028
  Receipt Date: 20161028
  Transmission Date: 20170207
  Serious: Yes (Hospitalization, Other)
  Sender: FDA-Public Use
  Company Number: US-FRESENIUS KABI-FK201608184

PATIENT
  Age: 16 Year
  Sex: Female
  Weight: 47.2 kg

DRUGS (4)
  1. DIPRIVAN [Suspect]
     Active Substance: PROPOFOL
     Route: 042
     Dates: start: 20161020, end: 20161020
  2. DIPRIVAN [Suspect]
     Active Substance: PROPOFOL
     Route: 042
     Dates: start: 20161020, end: 20161020
  3. DIPRIVAN [Suspect]
     Active Substance: PROPOFOL
     Route: 042
     Dates: start: 20161013, end: 20161013
  4. DIPRIVAN [Suspect]
     Active Substance: PROPOFOL
     Indication: SEDATIVE THERAPY
     Route: 042
     Dates: start: 20161013, end: 20161013

REACTIONS (5)
  - Vomiting [Recovered/Resolved]
  - Nausea [Recovered/Resolved]
  - Hypophosphataemia [Recovered/Resolved]
  - Hypokalaemia [Recovered/Resolved]
  - Abdominal pain [Unknown]
